FAERS Safety Report 8340600-X (Version None)
Quarter: 2012Q2

REPORT INFORMATION
  Report Type: 
  Country: None (occurrence: None)
  Receive Date: 20120426
  Receipt Date: 20120426
  Transmission Date: 20120825
  Serious: Yes (Hospitalization)
  Sender: FDA-Public Use
  Company Number: None

PATIENT
  Sex: Female
  Weight: 57.6068 kg

DRUGS (1)
  1. RECLAST [Suspect]
     Indication: OSTEOPOROSIS
     Dates: start: 20110908

REACTIONS (4)
  - ADVERSE DRUG REACTION [None]
  - BONE PAIN [None]
  - FOOT FRACTURE [None]
  - STRESS FRACTURE [None]
